FAERS Safety Report 5467444-0 (Version None)
Quarter: 2007Q3

REPORT INFORMATION
  Report Type: 
  Country: None (occurrence: None)
  Receive Date: 20070925
  Receipt Date: 20070913
  Transmission Date: 20080115
  Serious: Yes (Hospitalization)
  Sender: FDA-Public Use
  Company Number: US-SHR-US-2006-031996

PATIENT
  Age: 53 Year
  Sex: Female

DRUGS (29)
  1. BETASERON [Suspect]
     Indication: RELAPSING-REMITTING MULTIPLE SCLEROSIS
     Dosage: 8 MIU, EVERY 2D
     Route: 058
     Dates: start: 20060829, end: 20060929
  2. BETASERON [Suspect]
     Dosage: 8 MIU, EVERY 2D
     Route: 058
     Dates: start: 20061016, end: 20070101
  3. BETASERON [Suspect]
     Dosage: 8 MIU, EVERY 2D
     Route: 058
     Dates: start: 20010504, end: 20060322
  4. BETASERON [Suspect]
     Dosage: 8 MIU, EVERY 2D
     Route: 058
     Dates: start: 20060526, end: 20060626
  5. PREMARIN [Concomitant]
  6. PROCARDIA [Concomitant]
  7. PRILOSEC [Concomitant]
  8. WELLBUTRIN [Concomitant]
  9. THEOPHYLLINE [Concomitant]
  10. REGLAN [Concomitant]
  11. PREDNISONE [Concomitant]
  12. ZANAFLEX [Concomitant]
  13. LEXAPRO [Concomitant]
  14. AMITRIPTYLINE HCL [Concomitant]
  15. PHENERGAN ^AVENTIS PHARMA^ [Concomitant]
  16. HYDROCODONE BITARTRATE [Concomitant]
  17. ADVAIR DISKUS 100/50 [Concomitant]
     Route: 055
  18. ALBUTEROL [Concomitant]
     Route: 055
  19. PROVIGIL [Concomitant]
  20. VITAMIN CAP [Concomitant]
  21. ACTONEL [Concomitant]
  22. VITAMIN D [Concomitant]
  23. CITRUCEL [Concomitant]
  24. KLOR-CON [Concomitant]
  25. ULTRAM [Concomitant]
  26. LEVSIN [Concomitant]
  27. NEURONTIN [Concomitant]
  28. ZOCOR [Concomitant]
  29. SPIRILA INHALER [Concomitant]
     Route: 055

REACTIONS (9)
  - ADVERSE DRUG REACTION [None]
  - ARTHROPATHY [None]
  - ASTHMA [None]
  - BRONCHITIS [None]
  - HAEMATOMA [None]
  - LUNG INFECTION [None]
  - PAIN IN EXTREMITY [None]
  - PULMONARY CONGESTION [None]
  - THROMBOSIS [None]
